FAERS Safety Report 25994072 (Version 1)
Quarter: 2025Q4

REPORT INFORMATION
  Report Type: Spontaneous
  Country: MY (occurrence: MY)
  Receive Date: 20251104
  Receipt Date: 20251104
  Transmission Date: 20260118
  Serious: Yes (Death, Hospitalization, Other)
  Sender: ANI
  Company Number: MY-ANIPHARMA-031042

PATIENT
  Age: 15 Year
  Sex: Male

DRUGS (1)
  1. FLUVOXAMINE MALEATE [Suspect]
     Active Substance: FLUVOXAMINE MALEATE
     Indication: Major depression
     Route: 048
     Dates: start: 2018

REACTIONS (2)
  - Haemorrhage intracranial [Fatal]
  - Headache [Fatal]

NARRATIVE: CASE EVENT DATE: 20200101
